FAERS Safety Report 10177817 (Version 1)
Quarter: 2014Q2

REPORT INFORMATION
  Report Type: Spontaneous
  Country: US (occurrence: US)
  Receive Date: 20140516
  Receipt Date: 20140516
  Transmission Date: 20141212
  Serious: No
  Sender: FDA-Public Use
  Company Number: US-SA-2013SA106110

PATIENT
  Age: 70 Year
  Sex: Male

DRUGS (3)
  1. APIDRA SOLOSTAR [Suspect]
     Indication: TYPE 2 DIABETES MELLITUS
     Dosage: FREQUENCY: PER MEAL DOSE:3 UNIT(S)
     Route: 058
  2. SOLOSTAR [Concomitant]
     Indication: TYPE 2 DIABETES MELLITUS
  3. ANTIBIOTICS [Concomitant]

REACTIONS (4)
  - Infection [Unknown]
  - Herpes virus infection [Unknown]
  - Dyspnoea [Unknown]
  - Incorrect dose administered [Unknown]
